FAERS Safety Report 8401326-7 (Version None)
Quarter: 2012Q2

REPORT INFORMATION
  Report Type: 
  Country: None (occurrence: None)
  Receive Date: 20120601
  Receipt Date: 20120524
  Transmission Date: 20120825
  Serious: Yes (Hospitalization, Other)
  Sender: FDA-Public Use
  Company Number: JP-B.I. PHARMACEUTICALS,INC./RIDGEFIELD-2012-BP-10895NB

PATIENT
  Age: 78 Year
  Sex: Female
  Weight: 48 kg

DRUGS (5)
  1. LORAZEPAM [Concomitant]
     Indication: ANALGESIC THERAPY
     Dosage: 1 MG
     Route: 048
     Dates: start: 20120225
  2. PRADAXA [Suspect]
     Dosage: 220 MG
     Route: 048
     Dates: start: 20120425, end: 20120505
  3. BISOPROLOL FUMARATE [Concomitant]
     Indication: ATRIAL FIBRILLATION
     Dosage: 2.5 MG
     Route: 048
     Dates: start: 20120225
  4. PRADAXA [Suspect]
     Dosage: 220 MG
     Route: 048
     Dates: start: 20120225, end: 20120407
  5. PRADAXA [Suspect]
     Indication: ATRIAL FIBRILLATION
     Dosage: 220 MG
     Route: 048
     Dates: start: 20110510

REACTIONS (3)
  - DIARRHOEA [None]
  - HEPATIC NEOPLASM MALIGNANT [None]
  - MELAENA [None]
